FAERS Safety Report 6302081-7 (Version None)
Quarter: 2009Q3

REPORT INFORMATION
  Report Type: 
  Country: None (occurrence: None)
  Receive Date: 20090807
  Receipt Date: 20090803
  Transmission Date: 20100115
  Serious: Yes (Hospitalization)
  Sender: FDA-Public Use
  Company Number: US-ELI_LILLY_AND_COMPANY-US200908000457

PATIENT
  Sex: Female

DRUGS (4)
  1. HUMALOG [Suspect]
     Dosage: UNK, 3/D
     Dates: start: 19931001
  2. LANTUS [Concomitant]
  3. PLAVIX [Concomitant]
     Indication: THROMBOSIS
     Dosage: 75 MG, UNK
  4. ASPIRIN TAB [Concomitant]

REACTIONS (5)
  - AMBLYOPIA [None]
  - ARTHROPATHY [None]
  - CATARACT [None]
  - ISCHAEMIC STROKE [None]
  - KERATOMILEUSIS [None]
